FAERS Safety Report 8450618-4 (Version None)
Quarter: 2012Q2

REPORT INFORMATION
  Report Type: 
  Country: None (occurrence: None)
  Receive Date: 20120615
  Receipt Date: 20120615
  Transmission Date: 20120825
  Serious: No
  Sender: FDA-Public Use
  Company Number: None

PATIENT
  Age: 60 Year
  Sex: Male
  Weight: 122.7 kg

DRUGS (1)
  1. IOHEXOL [Suspect]
     Dosage: ONCE
     Dates: start: 20120522, end: 20120522

REACTIONS (6)
  - NAUSEA [None]
  - VOMITING [None]
  - SYNCOPE [None]
  - DYSPNOEA [None]
  - URTICARIA [None]
  - FLUSHING [None]
